FAERS Safety Report 9656234 (Version 1)
Quarter: 2013Q4

REPORT INFORMATION
  Report Type: Report from Study
  Country: US (occurrence: US)
  Receive Date: 20131030
  Receipt Date: 20131030
  Transmission Date: 20140711
  Serious: Yes (Other)
  Sender: FDA-Public Use
  Company Number: US-JNJFOC-20131015013

PATIENT
  Age: 42 Year
  Sex: Female
  Weight: 65.77 kg

DRUGS (7)
  1. STELARA [Suspect]
     Indication: CROHN^S DISEASE
     Route: 058
     Dates: start: 20130926
  2. METHOTREXATE [Concomitant]
     Route: 065
  3. PREDNISONE [Concomitant]
     Route: 065
  4. ALBUTEROL [Concomitant]
     Route: 065
  5. ZYRTEC [Concomitant]
     Route: 065
  6. FOLIC ACID [Concomitant]
     Route: 065
  7. ZOFRAN [Concomitant]
     Route: 065

REACTIONS (2)
  - Pneumonia [Recovering/Resolving]
  - Off label use [Unknown]
